FAERS Safety Report 10184727 (Version 1)
Quarter: 2014Q2

REPORT INFORMATION
  Report Type: Spontaneous
  Country: US (occurrence: None)
  Receive Date: 20140520
  Receipt Date: 20140520
  Transmission Date: 20141212
  Serious: Yes (Hospitalization)
  Sender: FDA-Public Use
  Company Number: None

PATIENT
  Age: 60 Year
  Sex: Male

DRUGS (7)
  1. THYMOGLOBULIN [Suspect]
     Indication: IMMUNOSUPPRESSION
     Route: 042
     Dates: start: 20120930, end: 20121001
  2. PREDNISONE [Concomitant]
  3. MYCOPHENOLATE [Concomitant]
  4. TACROLIMUS [Concomitant]
  5. SULFAMETHOXAZOLE-TRIMETHOPRIM [Concomitant]
  6. PRAVASTATIN [Concomitant]
  7. RANITIDINE [Concomitant]

REACTIONS (4)
  - Dyspnoea [None]
  - Agitation [None]
  - Oxygen saturation decreased [None]
  - Pulmonary oedema [None]
